FAERS Safety Report 24802792 (Version 2)
Quarter: 2025Q1

REPORT INFORMATION
  Report Type: Report from Study
  Country: CA (occurrence: CA)
  Receive Date: 20250103
  Receipt Date: 20250213
  Transmission Date: 20250409
  Serious: Yes (Death, Other)
  Sender: SANDOZ
  Company Number: CA-002147023-NVSC2022CA164577

PATIENT
  Sex: Male
  Weight: 80.884 kg

DRUGS (2)
  1. PIRFENIDONE [Suspect]
     Active Substance: PIRFENIDONE
     Indication: Idiopathic pulmonary fibrosis
     Route: 048
     Dates: start: 20200615
  2. PIRFENIDONE [Suspect]
     Active Substance: PIRFENIDONE
     Indication: Interstitial lung disease
     Route: 048

REACTIONS (14)
  - Death [Fatal]
  - Idiopathic pulmonary fibrosis [Fatal]
  - Condition aggravated [Fatal]
  - Dyspnoea [Unknown]
  - Forced expiratory volume decreased [Unknown]
  - Restrictive pulmonary disease [Unknown]
  - Forced vital capacity decreased [Unknown]
  - Lung diffusion test decreased [Unknown]
  - FEV1/FVC ratio abnormal [Unknown]
  - Wheezing [Unknown]
  - Oxygen saturation decreased [Unknown]
  - Dyspnoea exertional [Unknown]
  - Cough [Unknown]
  - Dyspnoea [Unknown]
